FAERS Safety Report 5971338-1 (Version None)
Quarter: 2008Q4

REPORT INFORMATION
  Report Type: 
  Country: None (occurrence: None)
  Receive Date: 20081128
  Receipt Date: 20081125
  Transmission Date: 20090506
  Serious: Yes (Other)
  Sender: FDA-Public Use
  Company Number: CN-PFIZER INC-2008100155

PATIENT
  Age: 80 Year
  Sex: Male

DRUGS (1)
  1. DIFLUCAN [Suspect]
     Indication: BRONCHOPULMONARY ASPERGILLOSIS
     Dosage: DAILY DOSE:200MG
     Route: 042
     Dates: start: 20081122, end: 20081123

REACTIONS (1)
  - CHEST PAIN [None]
